FAERS Safety Report 25813077 (Version 1)
Quarter: 2025Q3

REPORT INFORMATION
  Report Type: Spontaneous
  Country: US (occurrence: US)
  Receive Date: 20250917
  Receipt Date: 20250917
  Transmission Date: 20251021
  Serious: No
  Sender: FERRING
  Company Number: US-FERRINGPH-2025FE02966

PATIENT
  Age: 33 Year
  Sex: Female
  Weight: 75.8 kg

DRUGS (1)
  1. REBYOTA [Suspect]
     Active Substance: DONOR HUMAN STOOL
     Indication: Product used for unknown indication
     Route: 065
     Dates: start: 20250529, end: 20250529

REACTIONS (4)
  - Vomiting [Unknown]
  - Proctalgia [Unknown]
  - Diarrhoea [Unknown]
  - Drug ineffective [Unknown]

NARRATIVE: CASE EVENT DATE: 20250529
